FAERS Safety Report 21982304 (Version 5)
Quarter: 2023Q1

REPORT INFORMATION
  Report Type: Spontaneous
  Country: US (occurrence: US)
  Receive Date: 20230213
  Receipt Date: 20230324
  Transmission Date: 20230417
  Serious: No
  Sender: FDA-Public Use
  Company Number: US-GBT-019853

PATIENT
  Age: 4 Year
  Sex: Female

DRUGS (3)
  1. OXBRYTA [Suspect]
     Active Substance: VOXELOTOR
     Indication: Sickle cell disease
     Route: 048
     Dates: start: 20230127
  2. PENICILLIN [Concomitant]
     Active Substance: PENICILLIN
     Indication: Infection prophylaxis
  3. HYDROXYUREA [Concomitant]
     Active Substance: HYDROXYUREA
     Indication: Haemoglobin

REACTIONS (7)
  - Nausea [Not Recovered/Not Resolved]
  - Therapy cessation [Unknown]
  - Vomiting [Not Recovered/Not Resolved]
  - Product use complaint [Unknown]
  - Product physical consistency issue [Unknown]
  - Therapy interrupted [Unknown]
  - Drug intolerance [Unknown]

NARRATIVE: CASE EVENT DATE: 20230101
